FAERS Safety Report 14434903 (Version 2)
Quarter: 2019Q1

REPORT INFORMATION
  Report Type: Spontaneous
  Country: FR (occurrence: FR)
  Receive Date: 20180125
  Receipt Date: 20190329
  Transmission Date: 20190417
  Serious: Yes (Life-Threatening)
  Sender: FDA-Public Use
  Company Number: FR-SUN PHARMACEUTICAL INDUSTRIES LTD-2018R1-161200

PATIENT
  Age: 33 Year
  Sex: Female

DRUGS (3)
  1. RHINOFLUIMUCIL, SOLUTION POUR PULVERISATION NASALE [Suspect]
     Active Substance: ACETYLCYSTEINE\BENZALKONIUM CHLORIDE\TUAMINOHEPTANE SULFATE
     Indication: INFLUENZA LIKE ILLNESS
     Dosage: 2 DF, DAILY
     Route: 045
     Dates: start: 201712, end: 201712
  2. PARACETAMOL [Suspect]
     Active Substance: ACETAMINOPHEN
     Indication: INFLUENZA LIKE ILLNESS
     Dosage: UNK
     Route: 048
     Dates: start: 201712, end: 201712
  3. HELICIDINE [Suspect]
     Active Substance: ESCARGOT
     Indication: INFLUENZA LIKE ILLNESS
     Dosage: UNK
     Route: 048
     Dates: start: 201712, end: 201712

REACTIONS (4)
  - Coma [Recovered/Resolved]
  - Subarachnoid haemorrhage [Recovered/Resolved]
  - Hydrocephalus [Recovered/Resolved]
  - Foetal death [Recovered/Resolved with Sequelae]

NARRATIVE: CASE EVENT DATE: 20171228
